FAERS Safety Report 5486421-7 (Version None)
Quarter: 2007Q4

REPORT INFORMATION
  Report Type: 
  Country: None (occurrence: None)
  Receive Date: 20071012
  Receipt Date: 20071002
  Transmission Date: 20080405
  Serious: Yes (Hospitalization)
  Sender: FDA-Public Use
  Company Number: TPA2007A02023

PATIENT
  Age: 57 Year
  Sex: Male
  Weight: 92.5338 kg

DRUGS (9)
  1. ROZEREM [Suspect]
     Indication: INSOMNIA
     Dosage: 8 MG, QHS, PER ORAL; 2 TABLETS, QHS, PER ORAL; 8 MG, 1 TABLET, QHS, PER ORAL
     Route: 048
     Dates: start: 20060101, end: 20070906
  2. ROZEREM [Suspect]
     Indication: INSOMNIA
     Dosage: 8 MG, QHS, PER ORAL; 2 TABLETS, QHS, PER ORAL; 8 MG, 1 TABLET, QHS, PER ORAL
     Route: 048
     Dates: end: 20071001
  3. ROZEREM [Suspect]
     Indication: INSOMNIA
     Dosage: 8 MG, QHS, PER ORAL; 2 TABLETS, QHS, PER ORAL; 8 MG, 1 TABLET, QHS, PER ORAL
     Route: 048
     Dates: start: 20070907
  4. CITRACAL D (ERGOCALCIFEROL, CALCIUM CITRATE) [Concomitant]
  5. ATARAX [Concomitant]
  6. FLOMAX [Concomitant]
  7. ZYRTEC-D 12 HOUR [Concomitant]
  8. OMEGA 6 (OMEGA-6 FATTY ACIDS) [Concomitant]
  9. BENAZEPRIL HCL [Concomitant]

REACTIONS (14)
  - ABNORMAL DREAMS [None]
  - ARTHRITIS [None]
  - BENIGN PROSTATIC HYPERPLASIA [None]
  - BLOOD PRESSURE INCREASED [None]
  - DISORIENTATION [None]
  - DYSARTHRIA [None]
  - FATIGUE [None]
  - FEELING ABNORMAL [None]
  - INCORRECT DOSE ADMINISTERED [None]
  - INSOMNIA [None]
  - LUNG DISORDER [None]
  - PNEUMONIA [None]
  - SCAR [None]
  - VISION BLURRED [None]
